FAERS Safety Report 7497111-3 (Version None)
Quarter: 2011Q2

REPORT INFORMATION
  Report Type: 
  Country: None (occurrence: None)
  Receive Date: 20110523
  Receipt Date: 20110517
  Transmission Date: 20111010
  Serious: Yes (Death, Hospitalization, Other)
  Sender: FDA-Public Use
  Company Number: PHHY2011JO41679

PATIENT
  Age: 40 Year
  Sex: Female

DRUGS (4)
  1. LAMOTRIGINE [Suspect]
     Indication: MAJOR DEPRESSION
     Dosage: UNK UKN, UNK
  2. QUETIAPINE [Suspect]
     Indication: MAJOR DEPRESSION
     Dosage: UNK UKN, UNK
  3. VENLAFAXINE [Suspect]
     Indication: MAJOR DEPRESSION
     Dosage: UNK UKN, UNK
  4. MIRTAZAPINE [Suspect]
     Indication: MAJOR DEPRESSION
     Dosage: UNK UKN, UNK

REACTIONS (15)
  - CHILLS [None]
  - SEPTIC SHOCK [None]
  - CELLULITIS ORBITAL [None]
  - GENERAL PHYSICAL HEALTH DETERIORATION [None]
  - NEUTROPENIA [None]
  - CARDIAC ARREST [None]
  - ORAL CANDIDIASIS [None]
  - PRODUCTIVE COUGH [None]
  - UNRESPONSIVE TO STIMULI [None]
  - MULTI-ORGAN FAILURE [None]
  - PHARYNGITIS [None]
  - PYREXIA [None]
  - HYPOTENSION [None]
  - LEUKOPENIA [None]
  - FEBRILE NEUTROPENIA [None]
